FAERS Safety Report 21235693 (Version 7)
Quarter: 2024Q3

REPORT INFORMATION
  Report Type: Spontaneous
  Country: US (occurrence: US)
  Receive Date: 20220821
  Receipt Date: 20240915
  Transmission Date: 20241017
  Serious: Yes (Other)
  Sender: SANOFI AVENTIS
  Company Number: US-SA-SAC20220818001448

PATIENT
  Sex: Female

DRUGS (14)
  1. DUPIXENT [Suspect]
     Active Substance: DUPILUMAB
     Indication: Asthma
     Dosage: 300 MG, QOW
     Route: 058
     Dates: start: 201906, end: 2019
  2. DUPIXENT [Suspect]
     Active Substance: DUPILUMAB
     Dosage: 300 MG, QOW
     Route: 058
     Dates: start: 20191007, end: 20240213
  3. AMIODARONE HYDROCHLORIDE [Suspect]
     Active Substance: AMIODARONE HYDROCHLORIDE
     Dosage: UNK, START TAKING AMIODARONE (AFTER STARTING DUPIXENT) FOR A WHILE BEFORE THE SURGERY
  4. AMIODARONE HYDROCHLORIDE [Suspect]
     Active Substance: AMIODARONE HYDROCHLORIDE
     Dosage: UNK, OPPED IT FOR THE SURGERY BUT TOOK IT AGAIN FOR SOME TIME AFTER THE SURGERY TOO
  5. AMIODARONE HYDROCHLORIDE [Suspect]
     Active Substance: AMIODARONE HYDROCHLORIDE
     Dosage: UNK, AMIODARONE SIDE EFFECTS BECAME TOO MUCH, HAD TO STOP IT
  6. VERAPAMIL [Concomitant]
     Active Substance: VERAPAMIL HYDROCHLORIDE
  7. LISINOPRIL [Concomitant]
     Active Substance: LISINOPRIL
  8. ELIQUIS [Concomitant]
     Active Substance: APIXABAN
  9. MONTELUKAST [Concomitant]
     Active Substance: MONTELUKAST SODIUM
  10. PULMICORT FLEXHALER [Concomitant]
     Active Substance: BUDESONIDE
     Dosage: UNK
  11. ALBUTEROL SULFATE [Concomitant]
     Active Substance: ALBUTEROL SULFATE
     Indication: Dyspnoea
  12. ALBUTEROL [Concomitant]
     Active Substance: ALBUTEROL
  13. NITROSTAT [Concomitant]
     Active Substance: NITROGLYCERIN
  14. ALBUTEROL\IPRATROPIUM [Concomitant]
     Active Substance: ALBUTEROL\IPRATROPIUM
     Dosage: UNK

REACTIONS (19)
  - Pulmonary oedema [Unknown]
  - Cardiac ablation [Unknown]
  - Fibromyalgia [Unknown]
  - Memory impairment [Recovering/Resolving]
  - Dyspnoea [Unknown]
  - Product dose omission issue [Unknown]
  - Dysstasia [Unknown]
  - Spinal pain [Unknown]
  - Joint stiffness [Unknown]
  - Mobility decreased [Unknown]
  - Arthritis [Unknown]
  - Back pain [Unknown]
  - Asthma [Unknown]
  - Dyspnoea [Unknown]
  - Cough [Unknown]
  - Myalgia [Unknown]
  - Arthralgia [Unknown]
  - Accidental exposure to product [Unknown]
  - Exposure via skin contact [Unknown]

NARRATIVE: CASE EVENT DATE: 20220101
